FAERS Safety Report 11896901 (Version 2)
Quarter: 2016Q1

REPORT INFORMATION
  Report Type: Spontaneous
  Country: US (occurrence: US)
  Receive Date: 20160107
  Receipt Date: 20160219
  Transmission Date: 20160526
  Serious: No
  Sender: FDA-Public Use
  Company Number: US-ALLERGAN-1517978US

PATIENT
  Sex: Female

DRUGS (2)
  1. ACZONE [Suspect]
     Active Substance: DAPSONE
     Indication: ACNE
     Dosage: UNK UNK, QAM
     Route: 065
  2. TAZORAC [Suspect]
     Active Substance: TAZAROTENE
     Indication: PRODUCT USED FOR UNKNOWN INDICATION
     Dosage: UNK UNK, QHS

REACTIONS (6)
  - Thinking abnormal [Unknown]
  - Rash macular [Unknown]
  - Cyst [Unknown]
  - Facial pain [Unknown]
  - Ocular icterus [Unknown]
  - Swelling face [Unknown]
